FAERS Safety Report 8525491-6 (Version None)
Quarter: 2012Q3

REPORT INFORMATION
  Report Type: 
  Country: None (occurrence: None)
  Receive Date: 20120720
  Receipt Date: 20120711
  Transmission Date: 20120928
  Serious: Yes (Hospitalization, Disabling, Other)
  Sender: FDA-Public Use
  Company Number: US-009507513-1202USA04367

PATIENT

DRUGS (3)
  1. FOSAMAX [Suspect]
     Indication: OSTEOPOROSIS
     Dosage: UNK
     Route: 048
     Dates: start: 19980127, end: 20080315
  2. FOSAMAX [Suspect]
     Dosage: 20 MG, UNK
     Route: 048
     Dates: start: 20000101, end: 20030101
  3. FOSAMAX [Suspect]
     Dosage: 70 MG, QW
     Route: 048
     Dates: start: 20030101, end: 20080101

REACTIONS (36)
  - LOW TURNOVER OSTEOPATHY [None]
  - TONSILLECTOMY [None]
  - WISDOM TEETH REMOVAL [None]
  - SKIN PAPILLOMA [None]
  - VERTEBRAL WEDGING [None]
  - ILIOTIBIAL BAND SYNDROME [None]
  - SCIATICA [None]
  - DRUG INEFFECTIVE [None]
  - SALPINGO-OOPHORECTOMY BILATERAL [None]
  - TENDONITIS [None]
  - SPINAL OSTEOARTHRITIS [None]
  - BONE DISORDER [None]
  - ANAEMIA [None]
  - BURSITIS [None]
  - HYPOTHYROIDISM [None]
  - FOOT FRACTURE [None]
  - INTERVERTEBRAL DISC DISORDER [None]
  - KYPHOSIS [None]
  - FEMUR FRACTURE [None]
  - BREAST CYST [None]
  - LACERATION [None]
  - BODY HEIGHT DECREASED [None]
  - HERNIA REPAIR [None]
  - HYSTERECTOMY [None]
  - OSTEOARTHRITIS [None]
  - BONE DENSITY DECREASED [None]
  - INAPPROPRIATE SCHEDULE OF DRUG ADMINISTRATION [None]
  - ASTHMA [None]
  - SINUSITIS [None]
  - IMPAIRED HEALING [None]
  - GROIN PAIN [None]
  - INTERVERTEBRAL DISC SPACE NARROWING [None]
  - FALL [None]
  - RASH [None]
  - BLOOD PARATHYROID HORMONE ABNORMAL [None]
  - STRESS [None]
